FAERS Safety Report 9901269 (Version 2)
Quarter: 2014Q2

REPORT INFORMATION
  Report Type: Spontaneous
  Country: US (occurrence: US)
  Receive Date: 20140217
  Receipt Date: 20140417
  Transmission Date: 20141212
  Serious: No
  Sender: FDA-Public Use
  Company Number: US-009507513-1402USA007975

PATIENT
  Age: 90 Year
  Sex: Female
  Weight: 61.22 kg

DRUGS (5)
  1. OXYTROL FOR WOMEN [Suspect]
     Indication: NOCTURIA
     Dosage: 1 DF, Q4D
     Route: 062
     Dates: start: 20131217, end: 20140102
  2. OXYTROL FOR WOMEN [Suspect]
     Indication: HYPERTONIC BLADDER
  3. IPRATROPIUM BROMIDE [Concomitant]
     Indication: BRONCHITIS
     Dosage: UNK, UNKNOWN
  4. ALBUTEROL [Concomitant]
     Indication: BRONCHITIS
     Dosage: UNK, UNKNOWN
  5. ADVAIR [Concomitant]
     Indication: BRONCHITIS
     Dosage: UNK, UNKNOWN

REACTIONS (1)
  - Drug ineffective [Unknown]
